FAERS Safety Report 22330173 (Version 1)
Quarter: 2023Q2

REPORT INFORMATION
  Report Type: Spontaneous
  Country: US (occurrence: None)
  Receive Date: 20230517
  Receipt Date: 20230517
  Transmission Date: 20230722
  Serious: No
  Sender: FDA-Public Use
  Company Number: US-ROCHE-3098502

PATIENT
  Sex: Female

DRUGS (7)
  1. ACTEMRA [Suspect]
     Active Substance: TOCILIZUMAB
     Indication: Rheumatoid arthritis
     Route: 058
     Dates: start: 20220211
  2. ACTEMRA [Suspect]
     Active Substance: TOCILIZUMAB
  3. ACTEMRA [Suspect]
     Active Substance: TOCILIZUMAB
     Indication: Aortitis
  4. ACTEMRA [Suspect]
     Active Substance: TOCILIZUMAB
  5. HUMIRA [Concomitant]
     Active Substance: ADALIMUMAB
     Dosage: ONGOING: YES
  6. PLAQUENIL [Concomitant]
     Active Substance: HYDROXYCHLOROQUINE SULFATE
     Dosage: ONGOING: YES
  7. PREDNISONE [Concomitant]
     Active Substance: PREDNISONE
     Dosage: ONGOING: UNKNOWN

REACTIONS (4)
  - Illness [Unknown]
  - Bronchitis [Unknown]
  - Chronic obstructive pulmonary disease [Unknown]
  - Muscle strain [Unknown]
